FAERS Safety Report 24262720 (Version 1)
Quarter: 2024Q3

REPORT INFORMATION
  Report Type: Spontaneous
  Country: US (occurrence: None)
  Receive Date: 20240829
  Receipt Date: 20240829
  Transmission Date: 20241016
  Serious: No
  Sender: ASTRAZENECA
  Company Number: 2024A190396

PATIENT
  Sex: Female

DRUGS (1)
  1. SAPHNELO [Suspect]
     Active Substance: ANIFROLUMAB-FNIA
     Dates: start: 20240814

REACTIONS (5)
  - Dyspnoea [Unknown]
  - Muscle spasms [Unknown]
  - Pain in extremity [Unknown]
  - Chest discomfort [Unknown]
  - Pain [Unknown]
